FAERS Safety Report 18900366 (Version 2)
Quarter: 2021Q2

REPORT INFORMATION
  Report Type: Report from Study
  Country: None (occurrence: US)
  Receive Date: 20210217
  Receipt Date: 20210605
  Transmission Date: 20210717
  Serious: Yes (Hospitalization)
  Sender: FDA-Public Use
  Company Number: US-ABBVIE-21K-163-3743569-00

PATIENT
  Sex: Male

DRUGS (4)
  1. IMBRUVICA [Suspect]
     Active Substance: IBRUTINIB
     Indication: CUTANEOUS T-CELL LYMPHOMA
  2. IMBRUVICA [Suspect]
     Active Substance: IBRUTINIB
     Route: 048
     Dates: end: 202105
  3. IMBRUVICA [Suspect]
     Active Substance: IBRUTINIB
     Indication: TRANSPLANTATION COMPLICATION
     Route: 048
     Dates: start: 20201030
  4. IMBRUVICA [Suspect]
     Active Substance: IBRUTINIB
     Indication: GRAFT VERSUS HOST DISEASE
     Route: 048
     Dates: start: 202010

REACTIONS (3)
  - Asthenia [Unknown]
  - Adrenal insufficiency [Unknown]
  - Diarrhoea [Unknown]
